FAERS Safety Report 19631183 (Version 1)
Quarter: 2021Q3

REPORT INFORMATION
  Report Type: Spontaneous
  Country: US (occurrence: US)
  Receive Date: 20210729
  Receipt Date: 20210729
  Transmission Date: 20211014
  Serious: Yes (Other)
  Sender: FDA-Public Use
  Company Number: NVSC2021US168805

PATIENT
  Sex: Female

DRUGS (1)
  1. RECLAST [Suspect]
     Active Substance: ZOLEDRONIC ACID
     Indication: PRODUCT USED FOR UNKNOWN INDICATION
     Dosage: UNK (ON FEB 23)
     Route: 065

REACTIONS (11)
  - Muscle spasms [Unknown]
  - Dizziness [Unknown]
  - Depression [Unknown]
  - Syncope [Unknown]
  - Decreased appetite [Unknown]
  - Fall [Unknown]
  - Confusional state [Unknown]
  - Anxiety [Unknown]
  - Initial insomnia [Unknown]
  - Muscular weakness [Unknown]
  - Rheumatoid arthritis [Unknown]
